FAERS Safety Report 19609417 (Version 1)
Quarter: 2021Q3

REPORT INFORMATION
  Report Type: Spontaneous
  Country: US (occurrence: US)
  Receive Date: 20210726
  Receipt Date: 20210726
  Transmission Date: 20211014
  Serious: Yes (Death, Life-Threatening, Hospitalization)
  Sender: FDA-Public Use
  Company Number: None

PATIENT
  Age: 84 Year
  Sex: Female
  Weight: 49.5 kg

DRUGS (5)
  1. LOTAMAX [Concomitant]
  2. HALDOL [Suspect]
     Active Substance: HALOPERIDOL
     Indication: AGITATION
     Route: 042
     Dates: start: 20210428, end: 20210429
  3. COMBIGAN [Concomitant]
     Active Substance: BRIMONIDINE TARTRATE\TIMOLOL MALEATE
  4. HALDOL [Suspect]
     Active Substance: HALOPERIDOL
     Indication: PAIN
     Route: 042
     Dates: start: 20210428, end: 20210429
  5. ENSURE [Concomitant]
     Active Substance: AMINO ACIDS\DEXTROSE\ELECTROLYTES NOS\SOYBEAN OIL\VITAMINS

REACTIONS (3)
  - Wrong technique in product usage process [None]
  - Extra dose administered [None]
  - Hypoxia [None]

NARRATIVE: CASE EVENT DATE: 20210428
